FAERS Safety Report 6987854-X (Version None)
Quarter: 2010Q3

REPORT INFORMATION
  Report Type: 
  Country: None (occurrence: None)
  Receive Date: 20100830
  Receipt Date: 20100517
  Transmission Date: 20110219
  Serious: Yes (Hospitalization)
  Sender: FDA-Public Use
  Company Number: CIP10001099

PATIENT
  Age: 49 Year
  Sex: Female

DRUGS (2)
  1. ASACOL HD [Suspect]
     Indication: COLITIS ULCERATIVE
     Dosage: 800 MG TWICE DAILY, ORAL
     Route: 048
     Dates: start: 20100413
  2. LOESTRIN 1.5/30 [Concomitant]

REACTIONS (2)
  - PAIN [None]
  - PANCREATITIS ACUTE [None]
